FAERS Safety Report 8951196 (Version 3)
Quarter: 2013Q1

REPORT INFORMATION
  Report Type: Spontaneous
  Country: US (occurrence: None)
  Receive Date: 20121106
  Receipt Date: 20121231
  Transmission Date: 20140127
  Serious: Yes (Hospitalization, Disabling, Other)
  Sender: FDA-Public Use
  Company Number: 2012PROUSA02199

PATIENT
  Age: 68 Year
  Sex: Male
  Weight: 163.7 kg

DRUGS (25)
  1. CLARITIN (LORATADINE) TABLET [Concomitant]
  2. ATIVAN (LORAZEPAM) TABLET [Concomitant]
  3. TOPROL (METOPROLOL SUCCINATE) [Concomitant]
  4. MULTIVITAMIN (VITAMINS NOS) TABLET [Concomitant]
  5. OXYCODONE/ACETAMINOPHEN (OXYCODONE HYDROCHLORIDE, PARACETAMOL) [Concomitant]
  6. ZEMPLAR (PARICALCITOL) CAPSULE [Concomitant]
  7. KLOR-CON (POTASSIUM CHLORIDE) [Concomitant]
  8. ZOCOR (SIMVASTATIN) TABLET [Concomitant]
  9. JANUVIA (SITAGLIPTIN PHOSPHATE) TABLET [Concomitant]
  10. EFFEXOR-XR (VENLAFAXINE HYDROCHLORIDE) [Concomitant]
  11. COUMADIN (WARFARIN SODIUM) TABLET [Concomitant]
  12. ZOMETA (ZOLEDRONIC ACID) [Concomitant]
  13. DECADRON (DEXAMETHASONE) TABLET [Concomitant]
  14. LANOXIN (DIGOXIN) [Concomitant]
  15. NEURONTIN (GABAPENTIN) CAPSULE [Concomitant]
  16. PROVENGE (SIPULEUCEL-T) SUSPENSION, 250ML [Suspect]
     Indication: PROSTATE CANCER METASTATIC
     Route: 042
     Dates: start: 20121012, end: 20121012
  17. CORDARONE (AMIDARONE HYDROCHLORIDE) TABLET [Concomitant]
  18. ASPIRIN (ACETYLSALICYLIC ACID) TABLET [Concomitant]
  19. CASODEX (BICALUTAMIDE) TABLET [Concomitant]
  20. TUMS EXTRA STRENGTH (CALCIUM CARBONATE) [Concomitant]
  21. ROCALTROL (CALCITRIOL) [Concomitant]
  22. LASIX (FUROSEMIDE) TABLET [Concomitant]
  23. AMARYL (GLIMEPIRIDE) TABLET [Concomitant]
  24. LUPRON DEPOT-4 MONTH (LEUPRORELIN ACETATE) [Concomitant]
  25. ZESTRIL (LISINOPRIL) TABLET [Concomitant]

REACTIONS (20)
  - Urinary retention [None]
  - Prostate cancer metastatic [None]
  - Prostate cancer [None]
  - Asthenia [None]
  - Walking disability [None]
  - Confusional state [None]
  - Disorientation [None]
  - Decreased activity [None]
  - Hypophagia [None]
  - Gait disturbance [None]
  - Atrial fibrillation [None]
  - Myalgia [None]
  - Dizziness [None]
  - Fatigue [None]
  - Bowel movement irregularity [None]
  - Myalgia [None]
  - Back pain [None]
  - Drug dose omission [None]
  - Fall [None]
  - Compression fracture [None]
